FAERS Safety Report 13284337 (Version 1)
Quarter: 2017Q1

REPORT INFORMATION
  Report Type: Spontaneous
  Country: FR (occurrence: FR)
  Receive Date: 20170301
  Receipt Date: 20170301
  Transmission Date: 20170428
  Serious: Yes (Hospitalization)
  Sender: FDA-Public Use
  Company Number: FR-SA-2017SA032996

PATIENT
  Age: 63 Year
  Sex: Female
  Weight: 73 kg

DRUGS (15)
  1. BISOPROLOL FUMARATE. [Concomitant]
     Active Substance: BISOPROLOL FUMARATE
  2. GENTAMICIN. [Concomitant]
     Active Substance: GENTAMICIN
  3. DAFALGAN [Concomitant]
     Active Substance: ACETAMINOPHEN
  4. AERIUS [Concomitant]
     Active Substance: DESLORATADINE
  5. TEMESTA [Concomitant]
     Active Substance: LORAZEPAM
  6. RIFAMPICINE [Suspect]
     Active Substance: RIFAMPIN
     Route: 065
     Dates: start: 201612, end: 201612
  7. CRESTOR [Concomitant]
     Active Substance: ROSUVASTATIN CALCIUM
  8. DEROXAT [Concomitant]
     Active Substance: PAROXETINE HYDROCHLORIDE
     Dates: start: 20161210
  9. LANTUS [Concomitant]
     Active Substance: INSULIN GLARGINE
  10. ASPEGIC NOURRISSONS [Concomitant]
     Active Substance: ASPIRIN LYSINE
  11. DIFFU K [Concomitant]
     Active Substance: POTASSIUM CHLORIDE
  12. ULTRA-LEVURE [Concomitant]
     Active Substance: SACCHAROMYCES CEREVISIAE
  13. INEXIUM [Concomitant]
     Active Substance: ESOMEPRAZOLE
  14. TARDYFERON [Concomitant]
     Active Substance: FERROUS SULFATE
  15. VANCOMYCINE [Concomitant]
     Active Substance: VANCOMYCIN

REACTIONS (2)
  - Gastric disorder [Recovered/Resolved]
  - Nausea [Recovered/Resolved]

NARRATIVE: CASE EVENT DATE: 201612
